FAERS Safety Report 8990201 (Version 2)
Quarter: 2013Q1

REPORT INFORMATION
  Report Type: Spontaneous
  Country: US (occurrence: US)
  Receive Date: 20121228
  Receipt Date: 20130221
  Transmission Date: 20140127
  Serious: Yes (Other)
  Sender: FDA-Public Use
  Company Number: AT-WATSON-2012-22815

PATIENT
  Sex: 0

DRUGS (2)
  1. PACLITAXEL (UNKNOWN) [Suspect]
     Indication: OVARIAN EPITHELIAL CANCER
     Dosage: UNK, UNKNOWN
     Route: 064
  2. CARBOPLATIN (UNKNOWN) [Suspect]
     Indication: OVARIAN EPITHELIAL CANCER
     Dosage: UNK, UNKNOWN
     Route: 064

REACTIONS (3)
  - Foetal growth restriction [Unknown]
  - Foetal exposure during pregnancy [Unknown]
  - Caesarean section [None]
